FAERS Safety Report 11417679 (Version 1)
Quarter: 2015Q3

REPORT INFORMATION
  Report Type: Spontaneous
  Country: US (occurrence: US)
  Receive Date: 20150825
  Receipt Date: 20150825
  Transmission Date: 20151125
  Serious: Yes (Other)
  Sender: FDA-Public Use
  Company Number: PHHY2015US083602

PATIENT
  Age: 10 Year
  Sex: Female

DRUGS (12)
  1. LIORESAL [Suspect]
     Active Substance: BACLOFEN
     Indication: MUSCLE SPASTICITY
     Dosage: 1000 UG, PER DAY
     Route: 037
  2. VALIUM [Suspect]
     Active Substance: DIAZEPAM
     Indication: DYSTONIA
     Dosage: 1 DF, Q8H
     Route: 048
  3. MILK OF MAGNESIA [Suspect]
     Active Substance: MAGNESIUM HYDROXIDE
     Indication: PRODUCT USED FOR UNKNOWN INDICATION
     Dosage: 10 ML, PRN
     Route: 048
  4. FLEET NOS [Suspect]
     Active Substance: BISACODYL OR GLYCERIN OR MINERAL OIL OR SODIUM PHOSPHATE, DIBASIC\SODIUM PHOSPHATE, MONOBASIC
     Indication: PRODUCT USED FOR UNKNOWN INDICATION
     Dosage: UNK
     Route: 054
  5. ARTANE [Suspect]
     Active Substance: TRIHEXYPHENIDYL HYDROCHLORIDE
     Indication: PRODUCT USED FOR UNKNOWN INDICATION
     Dosage: 1 MG IN THE MORNING AND 1 MG IN THE EVENING PER MOM
     Route: 065
  6. CORTEF [Suspect]
     Active Substance: HYDROCORTISONE
     Indication: MALAISE
     Dosage: 1 DF, BID
     Route: 048
  7. BACLOFEN. [Suspect]
     Active Substance: BACLOFEN
     Indication: PRODUCT USED FOR UNKNOWN INDICATION
     Dosage: 20 MG, 3 TO 4 TIMES PER DAY
     Route: 048
  8. HYDROCORTISONE SODIUM SUCCINATE [Suspect]
     Active Substance: HYDROCORTISONE SODIUM SUCCINATE
     Indication: PRODUCT USED FOR UNKNOWN INDICATION
     Dosage: 1 ML, PRN (100 MG/2 ML) 50 MG AS NEEDED FOR EMERGENCY
     Route: 030
  9. LIDOCAINE. [Suspect]
     Active Substance: LIDOCAINE
     Indication: PRODUCT USED FOR UNKNOWN INDICATION
     Dosage: UNK UNK, PRN
     Route: 061
  10. PREVACID [Suspect]
     Active Substance: LANSOPRAZOLE
     Indication: PRODUCT USED FOR UNKNOWN INDICATION
     Dosage: 1 DF, QD
     Route: 048
  11. LIORESAL [Suspect]
     Active Substance: BACLOFEN
     Dosage: 12.3 UG, PER DAY
     Route: 037
  12. VALIUM [Suspect]
     Active Substance: DIAZEPAM
     Dosage: 1 DF, QID OVER THE WEEKEND
     Route: 048

REACTIONS (5)
  - Dystonia [Unknown]
  - Pruritus [Unknown]
  - Muscle tightness [Unknown]
  - Drug withdrawal syndrome [Unknown]
  - Posturing [Unknown]

NARRATIVE: CASE EVENT DATE: 20150703
